FAERS Safety Report 7019695-1 (Version None)
Quarter: 2010Q3

REPORT INFORMATION
  Report Type: 
  Country: None (occurrence: None)
  Receive Date: 20100909
  Receipt Date: 20100611
  Transmission Date: 20110219
  Serious: No
  Sender: FDA-Public Use
  Company Number: 2010SP033251

PATIENT
  Age: 56 Year
  Sex: Male

DRUGS (2)
  1. SAPHRIS [Suspect]
     Indication: BIPOLAR DISORDER
     Dosage: 5 MG ; BID ; SL
     Route: 060
  2. LAMICTAL [Concomitant]

REACTIONS (1)
  - ORTHOSTATIC HYPOTENSION [None]
